FAERS Safety Report 18499811 (Version 1)
Quarter: 2020Q4

REPORT INFORMATION
  Report Type: Spontaneous
  Country: AT (occurrence: AT)
  Receive Date: 20201112
  Receipt Date: 20201112
  Transmission Date: 20210114
  Serious: Yes (Other)
  Sender: FDA-Public Use
  Company Number: AT-BAXTER-2020BAX022607

PATIENT
  Age: 26 Year

DRUGS (7)
  1. VINCRISTINE [Suspect]
     Active Substance: VINCRISTINE
     Indication: DIFFUSE LARGE B-CELL LYMPHOMA STAGE I
     Dosage: 6 CYCLES ADMINISTERED IN TOTAL?R2-CHOP THERAPY
     Route: 065
  2. METHOTREXATE. [Suspect]
     Active Substance: METHOTREXATE
     Indication: PROPHYLAXIS
     Dosage: 2 CYCLES ADMINISTERED (HIGH DOSE)
     Route: 065
  3. ENDOXAN ANDQUOT;BAXTERANDQUOT; 1G TROCKENSTECHAMPULLE [Suspect]
     Active Substance: CYCLOPHOSPHAMIDE
     Indication: DIFFUSE LARGE B-CELL LYMPHOMA STAGE I
     Dosage: 6 CYCLES ADMINISTERED IN TOTAL?R2-CHOP THERAPY
     Route: 065
  4. LENALIDOMID [Suspect]
     Active Substance: LENALIDOMIDE
     Indication: DIFFUSE LARGE B-CELL LYMPHOMA STAGE I
     Dosage: 6 CYCLES ADMINISTERED IN TOTAL?R2-CHOP THERAPY
     Route: 065
  5. RITUXIMAB. [Suspect]
     Active Substance: RITUXIMAB
     Indication: DIFFUSE LARGE B-CELL LYMPHOMA STAGE I
     Dosage: 6 CYCLES ADMINISTERED IN TOTAL?R2-CHOP THERAPY
     Route: 065
  6. DOXORUBICIN [Suspect]
     Active Substance: DOXORUBICIN
     Indication: DIFFUSE LARGE B-CELL LYMPHOMA STAGE I
     Dosage: 6 CYCLES ADMINISTERED IN TOTAL?R2-CHOP THERAPY
     Route: 065
  7. PREDNISONE. [Suspect]
     Active Substance: PREDNISONE
     Indication: DIFFUSE LARGE B-CELL LYMPHOMA STAGE I
     Dosage: 6 CYCLES ADMINISTERED IN TOTAL?R2-CHOP THERAPY
     Route: 065

REACTIONS (1)
  - Disease recurrence [Unknown]
